FAERS Safety Report 12171862 (Version 3)
Quarter: 2016Q2

REPORT INFORMATION
  Report Type: Spontaneous
  Country: US (occurrence: US)
  Receive Date: 20160311
  Receipt Date: 20160420
  Transmission Date: 20160815
  Serious: Yes (Other)
  Sender: FDA-Public Use
  Company Number: US-UNITED THERAPEUTICS-UNT-2015-015372

PATIENT
  Age: 70 Year
  Sex: Female
  Weight: 82.54 kg

DRUGS (8)
  1. LETAIRIS [Suspect]
     Active Substance: AMBRISENTAN
     Indication: CONNECTIVE TISSUE DISORDER
  2. ORENITRAM [Suspect]
     Active Substance: TREPROSTINIL
     Indication: PULMONARY HYPERTENSION
     Dosage: 1 MG, Q8H
     Route: 048
     Dates: start: 20150630
  3. ORENITRAM [Suspect]
     Active Substance: TREPROSTINIL
     Dosage: UNK
     Route: 048
  4. XARELTO [Concomitant]
     Active Substance: RIVAROXABAN
     Indication: PRODUCT USED FOR UNKNOWN INDICATION
  5. ORENITRAM [Suspect]
     Active Substance: TREPROSTINIL
     Dosage: 1 MG, TID
     Route: 048
     Dates: start: 20150630
  6. LETAIRIS [Suspect]
     Active Substance: AMBRISENTAN
     Indication: SCLERODERMA
  7. TRACLEER [Concomitant]
     Active Substance: BOSENTAN
     Indication: PRODUCT USED FOR UNKNOWN INDICATION
  8. LETAIRIS [Suspect]
     Active Substance: AMBRISENTAN
     Indication: PULMONARY HYPERTENSION
     Dosage: 5 MG, QD
     Route: 048
     Dates: start: 20160113

REACTIONS (25)
  - Nasal congestion [Unknown]
  - Headache [Unknown]
  - Dyspnoea exertional [Unknown]
  - Dry mouth [Unknown]
  - Ulcer [Unknown]
  - Hernia [Unknown]
  - Dyspepsia [Not Recovered/Not Resolved]
  - Face oedema [Recovered/Resolved]
  - Tooth disorder [Unknown]
  - Scleroderma [Unknown]
  - Nephrolithiasis [Unknown]
  - Gastrooesophageal reflux disease [Unknown]
  - Thrombophlebitis superficial [Unknown]
  - Arthritis [Unknown]
  - Weight increased [Unknown]
  - Tooth infection [Recovered/Resolved]
  - Insomnia [Not Recovered/Not Resolved]
  - Bronchitis [Unknown]
  - Oxygen consumption increased [Unknown]
  - Calcinosis [Unknown]
  - Dysphagia [Unknown]
  - Dizziness [Unknown]
  - Localised oedema [Recovered/Resolved]
  - Joint injury [Unknown]
  - Gastric disorder [Unknown]

NARRATIVE: CASE EVENT DATE: 20150630
